FAERS Safety Report 24657653 (Version 1)
Quarter: 2024Q4

REPORT INFORMATION
  Report Type: Report from Study
  Country: GR (occurrence: GR)
  Receive Date: 20241125
  Receipt Date: 20241125
  Transmission Date: 20250115
  Serious: Yes (Hospitalization, Other)
  Sender: TAKEDA
  Company Number: GR-TAKEDA-2024TUS117354

PATIENT
  Age: 72 Year
  Sex: Female

DRUGS (8)
  1. PARATHYROID HORMONE [Suspect]
     Active Substance: PARATHYROID HORMONE
     Indication: Autoimmune hypoparathyroidism
     Dosage: 100 MILLIGRAM, QD
     Dates: start: 202106
  2. PARATHYROID HORMONE [Suspect]
     Active Substance: PARATHYROID HORMONE
  3. PARATHYROID HORMONE [Suspect]
     Active Substance: PARATHYROID HORMONE
  4. LYRICA [Concomitant]
     Active Substance: PREGABALIN
  5. NEXIUM [Concomitant]
     Active Substance: ESOMEPRAZOLE MAGNESIUM
     Indication: Gastrointestinal disorder prophylaxis
  6. KEPPRA [Concomitant]
     Active Substance: LEVETIRACETAM
     Indication: Optic nerve sheath meningioma
     Dosage: UNK UNK, QD
  7. OZEMPIC [Concomitant]
     Active Substance: SEMAGLUTIDE
     Indication: Blood glucose abnormal
     Dosage: 1 MILLIGRAM
  8. CALCORAL DX [Concomitant]
     Indication: Blood calcium abnormal
     Dosage: 1000 MILLIGRAM

REACTIONS (7)
  - Coma [Unknown]
  - Speech disorder [Unknown]
  - Oral discomfort [Unknown]
  - Abnormal sensation in eye [Unknown]
  - Blood calcium decreased [Unknown]
  - Insurance issue [Unknown]
  - Product dose omission issue [Unknown]

NARRATIVE: CASE EVENT DATE: 20220101
